FAERS Safety Report 9228082 (Version 1)
Quarter: 2013Q2

REPORT INFORMATION
  Report Type: Spontaneous
  Country: IT (occurrence: IT)
  Receive Date: 20130412
  Receipt Date: 20130412
  Transmission Date: 20140414
  Serious: Yes (Other)
  Sender: FDA-Public Use
  Company Number: IT-TEVA-397014ISR

PATIENT
  Sex: Female

DRUGS (2)
  1. CLARITROMICINA [Suspect]
  2. PARACETAMOLO [Suspect]

REACTIONS (2)
  - Loss of consciousness [Recovering/Resolving]
  - Vertigo [Recovering/Resolving]
